FAERS Safety Report 6132104-X (Version None)
Quarter: 2009Q1

REPORT INFORMATION
  Report Type: 
  Country: None (occurrence: None)
  Receive Date: 20090325
  Receipt Date: 20090319
  Transmission Date: 20090719
  Serious: Yes (Hospitalization)
  Sender: FDA-Public Use
  Company Number: A0774016A

PATIENT
  Age: 53 Year
  Sex: Female

DRUGS (2)
  1. PAXIL [Suspect]
     Dosage: 20MG UNKNOWN
     Route: 048
     Dates: start: 20020222
  2. NO CONCURRENT MEDICATION [Concomitant]

REACTIONS (3)
  - COLITIS MICROSCOPIC [None]
  - DIARRHOEA [None]
  - INJURY [None]
